FAERS Safety Report 5151239-1 (Version None)
Quarter: 2006Q4

REPORT INFORMATION
  Report Type: 
  Country: None (occurrence: None)
  Receive Date: 20061113
  Receipt Date: 20061113
  Transmission Date: 20070319
  Serious: No
  Sender: FDA-Public Use
  Company Number: None

PATIENT
  Sex: Female
  Weight: 79.3795 kg

DRUGS (4)
  1. LAMICTAL [Suspect]
     Indication: BIPOLAR DISORDER
     Dosage: SEE IMAGE
     Route: 048
  2. NEXIUM [Concomitant]
  3. VASOTEC [Concomitant]
  4. PROZAC [Concomitant]

REACTIONS (4)
  - APTYALISM [None]
  - LETHARGY [None]
  - MENTAL DISORDER [None]
  - STEVENS-JOHNSON SYNDROME [None]
